FAERS Safety Report 15644317 (Version 2)
Quarter: 2018Q4

REPORT INFORMATION
  Report Type: Spontaneous
  Country: JP (occurrence: JP)
  Receive Date: 20181121
  Receipt Date: 20181205
  Transmission Date: 20190205
  Serious: Yes (Hospitalization)
  Sender: FDA-Public Use
  Company Number: JP-BRACCO-2018JP05304

PATIENT
  Age: 55 Year
  Sex: Male

DRUGS (10)
  1. INSULIN [Concomitant]
     Active Substance: INSULIN NOS
     Indication: DIABETES MELLITUS
     Dosage: UNK
  2. BAYASPIRIN 100 MG [Concomitant]
     Active Substance: ASPIRIN
     Dosage: DAILY DOSE 100 MG
  3. IOPAMIRON [Suspect]
     Active Substance: IOPAMIDOL
     Indication: COMPUTERISED TOMOGRAM ABDOMEN
     Dosage: UNK, SINGLE
     Route: 042
     Dates: start: 20180727, end: 20180727
  4. ALESION [Concomitant]
     Active Substance: EPINASTINE HYDROCHLORIDE
     Dosage: DAILY DOSE 1 DF
  5. CALTAN [Concomitant]
     Active Substance: CALCIUM CARBONATE
     Dosage: 500 MG, TID
  6. SENNOSIDE A+B [Concomitant]
     Active Substance: SENNOSIDES A AND B
     Indication: CONSTIPATION
     Dosage: WHEN CONSTIPATION
  7. ROCALTROL [Concomitant]
     Active Substance: CALCITRIOL
     Dosage: DAILY DOSE .5 ?G
  8. BAYASPIRIN 100 MG [Concomitant]
     Active Substance: ASPIRIN
     Dosage: DAILY DOSE 100 MG
  9. AIMIX [Concomitant]
     Active Substance: AMLODIPINE BESYLATE\IRBESARTAN
     Dosage: DAILY DOSE 1 DF
  10. PLAVIX [Concomitant]
     Active Substance: CLOPIDOGREL BISULFATE
     Dosage: 75 MG, QD

REACTIONS (1)
  - Drug eruption [Recovering/Resolving]

NARRATIVE: CASE EVENT DATE: 20180728
